FAERS Safety Report 15796094 (Version 3)
Quarter: 2019Q1

REPORT INFORMATION
  Report Type: Report from Study
  Country: BR (occurrence: BR)
  Receive Date: 20190108
  Receipt Date: 20190118
  Transmission Date: 20190417
  Serious: Yes (Death, Hospitalization, Other)
  Sender: FDA-Public Use
  Company Number: BR-UCBSA-2019000389

PATIENT
  Age: 79 Year
  Sex: Female
  Weight: 65 kg

DRUGS (2)
  1. INSULIN [Concomitant]
     Active Substance: INSULIN NOS
     Indication: DIABETES MELLITUS
     Dosage: UNK
     Route: 058
     Dates: start: 20181231
  2. CIMZIA [Suspect]
     Active Substance: CERTOLIZUMAB PEGOL
     Indication: RHEUMATOID ARTHRITIS
     Dosage: 400 MG, UNK
     Route: 058
     Dates: start: 20181205, end: 20181222

REACTIONS (5)
  - Toxicity to various agents [Unknown]
  - Leukopenia [Unknown]
  - Blood glucose increased [Not Recovered/Not Resolved]
  - Cardiac arrest [Fatal]
  - Systemic infection [Not Recovered/Not Resolved]

NARRATIVE: CASE EVENT DATE: 20181222
